FAERS Safety Report 24963943 (Version 4)
Quarter: 2025Q2

REPORT INFORMATION
  Report Type: Spontaneous
  Country: US (occurrence: US)
  Receive Date: 20250213
  Receipt Date: 20250403
  Transmission Date: 20250717
  Serious: Yes (Other)
  Sender: SANDOZ
  Company Number: US-SANDOZ-SDZ2025US008860

PATIENT
  Age: 6 Decade
  Sex: Female
  Weight: 54.42 kg

DRUGS (3)
  1. COMBIPATCH [Suspect]
     Active Substance: ESTRADIOL\NORETHINDRONE ACETATE
     Indication: Menopausal symptoms
     Route: 062
  2. BOTOX [Concomitant]
     Active Substance: ONABOTULINUMTOXINA
     Indication: Product used for unknown indication
     Route: 065
  3. EXCEDRIN [Concomitant]
     Active Substance: ACETAMINOPHEN\ASPIRIN\CAFFEINE
     Indication: Product used for unknown indication
     Route: 065

REACTIONS (11)
  - Palpitations [Unknown]
  - Progesterone abnormal [Not Recovered/Not Resolved]
  - Blood oestrogen abnormal [Not Recovered/Not Resolved]
  - Intermenstrual bleeding [Unknown]
  - Adhesive tape use [Not Recovered/Not Resolved]
  - Product residue present [Not Recovered/Not Resolved]
  - Wrong technique in product usage process [Not Recovered/Not Resolved]
  - Product administered at inappropriate site [Unknown]
  - Device use issue [Unknown]
  - Product adhesion issue [Not Recovered/Not Resolved]
  - Product ineffective [Not Recovered/Not Resolved]
